FAERS Safety Report 5752763-0 (Version None)
Quarter: 2008Q2

REPORT INFORMATION
  Report Type: 
  Country: None (occurrence: None)
  Receive Date: 20080529
  Receipt Date: 20080314
  Transmission Date: 20081010
  Serious: Yes (Other)
  Sender: FDA-Public Use
  Company Number: BR-PFIZER INC-2008043973

PATIENT
  Sex: Female

DRUGS (2)
  1. XALATAN [Suspect]
     Indication: GLAUCOMA
     Route: 047
  2. ANCORON [Concomitant]

REACTIONS (7)
  - CHEST DISCOMFORT [None]
  - DRY EYE [None]
  - EYE INFLAMMATION [None]
  - HEART RATE INCREASED [None]
  - OCULAR HYPERAEMIA [None]
  - RASH PAPULAR [None]
  - SENSATION OF FOREIGN BODY [None]
